FAERS Safety Report 21929092 (Version 2)
Quarter: 2023Q1

REPORT INFORMATION
  Report Type: Spontaneous
  Country: US (occurrence: US)
  Receive Date: 20230131
  Receipt Date: 20230202
  Transmission Date: 20230417
  Serious: No
  Sender: FDA-Public Use
  Company Number: US-MTPC-MTDA2023-0002103

PATIENT
  Sex: Female

DRUGS (2)
  1. RADICAVA [Suspect]
     Active Substance: EDARAVONE
     Indication: Amyotrophic lateral sclerosis
     Dosage: 5 MILLILITER FOR 10 DAYS OUT OF 14 DAYS
     Route: 048
     Dates: start: 20230119
  2. RADICAVA [Suspect]
     Active Substance: EDARAVONE
     Indication: Amyotrophic lateral sclerosis
     Dosage: 5 MILLILITER FOR 10 DAYS OUT OF 14 DAYS
     Route: 048
     Dates: start: 20230119

REACTIONS (3)
  - Retching [Unknown]
  - Abdominal pain upper [Unknown]
  - Diarrhoea [Unknown]
